FAERS Safety Report 11862776 (Version 1)
Quarter: 2015Q4

REPORT INFORMATION
  Report Type: Spontaneous
  Country: IT (occurrence: IT)
  Receive Date: 20151223
  Receipt Date: 20151223
  Transmission Date: 20160305
  Serious: Yes (Hospitalization)
  Sender: FDA-Public Use
  Company Number: IT-MYLANLABS-2015M1046325

PATIENT

DRUGS (7)
  1. LORAZEPAM. [Suspect]
     Active Substance: LORAZEPAM
     Indication: BIPOLAR I DISORDER
     Route: 065
     Dates: start: 2005
  2. CLONAZEPAM. [Suspect]
     Active Substance: CLONAZEPAM
     Indication: BIPOLAR I DISORDER
     Route: 065
     Dates: start: 2005
  3. QUETIAPINE [Suspect]
     Active Substance: QUETIAPINE
     Indication: BIPOLAR I DISORDER
     Route: 065
     Dates: start: 2005
  4. PALIPERIDONE [Suspect]
     Active Substance: PALIPERIDONE
     Indication: BIPOLAR I DISORDER
     Route: 065
     Dates: start: 201310
  5. FLUPHENAZINE [Suspect]
     Active Substance: FLUPHENAZINE
     Indication: BIPOLAR I DISORDER
     Dosage: 25 MG MONTHLY
     Route: 030
     Dates: start: 2005
  6. FLUPHENAZINE [Suspect]
     Active Substance: FLUPHENAZINE
     Route: 030
     Dates: start: 201310
  7. HALOPERIDOL. [Suspect]
     Active Substance: HALOPERIDOL
     Indication: BIPOLAR I DISORDER
     Route: 065
     Dates: start: 2005

REACTIONS (1)
  - Neuroleptic malignant syndrome [Recovering/Resolving]
